FAERS Safety Report 10562313 (Version 1)
Quarter: 2014Q4

REPORT INFORMATION
  Report Type: Spontaneous
  Country: US (occurrence: None)
  Receive Date: 20141103
  Receipt Date: 20141103
  Transmission Date: 20150529
  Serious: No
  Sender: FDA-Public Use
  Company Number: None

PATIENT
  Age: 41 Year
  Sex: Male

DRUGS (7)
  1. BRENTUXIMAB [Suspect]
     Active Substance: BRENTUXIMAB VEDOTIN
     Indication: NEOPLASM MALIGNANT
     Route: 042
     Dates: end: 20140808
  2. FENOFIBRATE. [Suspect]
     Active Substance: FENOFIBRATE
  3. TRIAMCINOLONE ACETONIDE. [Concomitant]
     Active Substance: TRIAMCINOLONE ACETONIDE
  4. OMEGA 3 FATTY ACIDS [Concomitant]
     Active Substance: OMEGA-3 FATTY ACIDS
  5. METFORMIN [Concomitant]
     Active Substance: METFORMIN HYDROCHLORIDE
  6. CLOBAZAM [Concomitant]
     Active Substance: CLOBAZAM
  7. LEVOTIRACETAM [Concomitant]

REACTIONS (3)
  - Infusion site exfoliation [None]
  - Infusion site pain [None]
  - Infusion site extravasation [None]

NARRATIVE: CASE EVENT DATE: 20140808
